FAERS Safety Report 15515912 (Version 1)
Quarter: 2018Q4

REPORT INFORMATION
  Report Type: Spontaneous
  Country: FR (occurrence: FR)
  Receive Date: 20181017
  Receipt Date: 20181017
  Transmission Date: 20190205
  Serious: Yes (Hospitalization, Other)
  Sender: FDA-Public Use
  Company Number: FR-AUROBINDO-AUR-APL-2018-050765

PATIENT
  Age: 69 Year
  Sex: Male
  Weight: 106 kg

DRUGS (16)
  1. REPAGLINIDE. [Concomitant]
     Active Substance: REPAGLINIDE
     Dosage: ()
  2. AMLODIPINE [Concomitant]
     Active Substance: AMLODIPINE BESYLATE
     Dosage: ()
  3. OMEPRAZOLE. [Concomitant]
     Active Substance: OMEPRAZOLE
     Dosage: ()
  4. DUTASTERIDE. [Suspect]
     Active Substance: DUTASTERIDE
     Indication: BENIGN PROSTATIC HYPERPLASIA
     Dosage: 1 DOSAGE FORM
     Route: 048
  5. GALVUS [Suspect]
     Active Substance: VILDAGLIPTIN
     Indication: TYPE 2 DIABETES MELLITUS
     Route: 048
     Dates: end: 20180925
  6. ACIDE ACETYLSALICYLIQUE [Concomitant]
     Active Substance: ASPIRIN
     Dosage: ()
  7. PRAVASTATINE                       /00880402/ [Concomitant]
     Active Substance: PRAVASTATIN SODIUM
     Dosage: ()
  8. METFORMINE                         /00082701/ [Concomitant]
     Active Substance: METFORMIN HYDROCHLORIDE
     Dosage: ()
  9. VALSARTAN. [Concomitant]
     Active Substance: VALSARTAN
     Dosage: ()
  10. BUDESONIDE. [Concomitant]
     Active Substance: BUDESONIDE
     Dosage: ()
  11. RAMIPRIL. [Concomitant]
     Active Substance: RAMIPRIL
     Dosage: ()
  12. NOVOMIX [Concomitant]
     Active Substance: INSULIN ASPART
     Dosage: ()
  13. IXPRIM [Concomitant]
     Active Substance: ACETAMINOPHEN\TRAMADOL HYDROCHLORIDE
     Dosage: ()
  14. PANOTILE                           /00474401/ [Concomitant]
     Dosage: ()
  15. CROMOGLYCATE SODIQUE EG [Concomitant]
     Dosage: ()
  16. ALPROSTADIL. [Concomitant]
     Active Substance: ALPROSTADIL
     Dosage: ()

REACTIONS (1)
  - Pemphigoid [Recovering/Resolving]

NARRATIVE: CASE EVENT DATE: 201807
